FAERS Safety Report 9103406 (Version 1)
Quarter: 2013Q1

REPORT INFORMATION
  Report Type: Spontaneous
  Country: BR (occurrence: BR)
  Receive Date: 20130219
  Receipt Date: 20130219
  Transmission Date: 20140127
  Serious: Yes (Death, Other)
  Sender: FDA-Public Use
  Company Number: BR-PFIZER INC-2013060802

PATIENT
  Sex: 0

DRUGS (1)
  1. TIGECYCLINE [Suspect]

REACTIONS (1)
  - Hepatitis fulminant [Fatal]
